FAERS Safety Report 8841008 (Version 2)
Quarter: 2015Q1

REPORT INFORMATION
  Report Type: Report from Study
  Country: US (occurrence: US)
  Receive Date: 20121015
  Receipt Date: 20150128
  Transmission Date: 20150721
  Serious: Yes (Other)
  Sender: FDA-Public Use
  Company Number: US-ROCHE-1140991

PATIENT
  Sex: Male
  Weight: 33.5 kg

DRUGS (7)
  1. PREDNISOLONE. [Concomitant]
     Active Substance: PREDNISOLONE
  2. NUTROPIN AQ [Suspect]
     Active Substance: SOMATROPIN
     Indication: DWARFISM
     Dosage: THERAPY START DATE: 20-JUN-1996
     Route: 058
  3. IMURAN [Concomitant]
     Active Substance: AZATHIOPRINE
  4. AZATHIOPRINE. [Concomitant]
     Active Substance: AZATHIOPRINE
  5. CYCLOSPORINE. [Concomitant]
     Active Substance: CYCLOSPORINE
  6. PROTROPIN [Suspect]
     Active Substance: SOMATREM
     Indication: DWARFISM
  7. PROTROPIN [Suspect]
     Active Substance: SOMATREM
     Indication: GROWTH HORMONE DEFICIENCY
     Dosage: 0.3MG/KG/WEEK DAILY
     Route: 058
     Dates: start: 19930819

REACTIONS (4)
  - Pruritus [Unknown]
  - Hepatitis [Unknown]
  - Azotaemia [Unknown]
  - Renal disorder [Unknown]
